FAERS Safety Report 7480079-3 (Version None)
Quarter: 2011Q2

REPORT INFORMATION
  Report Type: 
  Country: None (occurrence: None)
  Receive Date: 20110516
  Receipt Date: 20110506
  Transmission Date: 20111010
  Serious: No
  Sender: FDA-Public Use
  Company Number: US-BIOGENIDEC-2011BI013753

PATIENT
  Sex: Female

DRUGS (1)
  1. TYSABRI [Suspect]
     Indication: MULTIPLE SCLEROSIS
     Route: 042
     Dates: start: 20070419

REACTIONS (10)
  - GENERAL PHYSICAL HEALTH DETERIORATION [None]
  - BALANCE DISORDER [None]
  - TREMOR [None]
  - SOMNOLENCE [None]
  - ASTHENIA [None]
  - INTENTION TREMOR [None]
  - HEMIPARESIS [None]
  - WEIGHT INCREASED [None]
  - MENOPAUSAL SYMPTOMS [None]
  - ANXIETY [None]
